FAERS Safety Report 5280672-2 (Version None)
Quarter: 2007Q1

REPORT INFORMATION
  Report Type: 
  Country: None (occurrence: None)
  Receive Date: 20061221
  Receipt Date: 20060817
  Transmission Date: 20070707
  Serious: Yes (Hospitalization)
  Sender: FDA-Public Use
  Company Number: US-CVT-061745

PATIENT
  Age: 78 Year
  Sex: Female

DRUGS (14)
  1. RANEXA [Suspect]
     Indication: ANGINA PECTORIS
     Dosage: 500 MG, BID ^FOR 2 MONTHS^, ORAL
     Route: 048
     Dates: start: 20060101, end: 20060801
  2. PROZAC [Concomitant]
  3. AMARYL [Concomitant]
  4. PLAVIX [Concomitant]
  5. NITROBID /00003201/ (GLYCERYL TRINITRATE) [Concomitant]
  6. PROTONIX /01263201/ (PANTOPRAZOLE) [Concomitant]
  7. ASPIRIN [Concomitant]
  8. INSULIN /00030501/ (INSULIN) [Concomitant]
  9. DIGOXIN /00017701/ (DIGOXIN) [Concomitant]
  10. COUMADIN [Concomitant]
  11. DARVOCET [Concomitant]
  12. TESSALON [Concomitant]
  13. CLONOPIN [Concomitant]
  14. PEPCID /00706001/ (FAMOTIDINE) [Concomitant]

REACTIONS (3)
  - BRADYCARDIA [None]
  - ELECTROCARDIOGRAM QT PROLONGED [None]
  - HYPOTENSION [None]
